FAERS Safety Report 7215999-8 (Version None)
Quarter: 2010Q4

REPORT INFORMATION
  Report Type: 
  Country: None (occurrence: None)
  Receive Date: 20101230
  Receipt Date: 20060526
  Transmission Date: 20110411
  Serious: Yes (Death)
  Sender: FDA-Public Use
  Company Number: UTC-003057

PATIENT
  Age: 66 Year
  Sex: Male

DRUGS (1)
  1. REMODULIN [Suspect]
     Dosage: INTRAVENOS
     Route: 042

REACTIONS (1)
  - DEATH [None]
